FAERS Safety Report 18596360 (Version 2)
Quarter: 2021Q1

REPORT INFORMATION
  Report Type: Spontaneous
  Country: IT (occurrence: IT)
  Receive Date: 20201209
  Receipt Date: 20210216
  Transmission Date: 20210419
  Serious: Yes (Hospitalization, Other)
  Sender: FDA-Public Use
  Company Number: IT-SA-2020SA349237

PATIENT
  Age: 73 Year
  Sex: Female

DRUGS (3)
  1. POMALIDOMIDE [Suspect]
     Active Substance: POMALIDOMIDE
     Indication: PLASMA CELL MYELOMA
     Dosage: 1 DF, QCY
     Route: 048
     Dates: end: 20200926
  2. FILGRASTIM [Concomitant]
     Active Substance: FILGRASTIM
  3. CLEXANE [Suspect]
     Active Substance: ENOXAPARIN SODIUM
     Indication: DEEP VEIN THROMBOSIS
     Dosage: 8000 KIU, QD
     Route: 058
     Dates: start: 20200801, end: 20200906

REACTIONS (4)
  - Anaemia [Recovering/Resolving]
  - Intra-abdominal haematoma [Recovering/Resolving]
  - Asthenia [Recovering/Resolving]
  - Arthralgia [Recovering/Resolving]

NARRATIVE: CASE EVENT DATE: 20200926
